FAERS Safety Report 22533889 (Version 7)
Quarter: 2024Q1

REPORT INFORMATION
  Report Type: Report from Study
  Country: US (occurrence: US)
  Receive Date: 20230608
  Receipt Date: 20240312
  Transmission Date: 20240410
  Serious: Yes (Hospitalization, Other)
  Sender: FDA-Public Use
  Company Number: US-BoehringerIngelheim-2023-BI-215383

PATIENT
  Age: 77 Year
  Sex: Male

DRUGS (4)
  1. OFEV [Suspect]
     Active Substance: NINTEDANIB
     Indication: Idiopathic pulmonary fibrosis
     Route: 048
     Dates: start: 202112
  2. OFEV [Suspect]
     Active Substance: NINTEDANIB
     Route: 048
     Dates: start: 202203
  3. AMLODIPINE [Concomitant]
     Active Substance: AMLODIPINE BESYLATE
     Indication: Product used for unknown indication
  4. IRON [Concomitant]
     Active Substance: IRON
     Indication: Product used for unknown indication

REACTIONS (17)
  - Haematochezia [Not Recovered/Not Resolved]
  - Dyspnoea exertional [Not Recovered/Not Resolved]
  - Pericardial effusion [Not Recovered/Not Resolved]
  - Cholecystitis infective [Not Recovered/Not Resolved]
  - Myocardial infarction [Not Recovered/Not Resolved]
  - Diarrhoea [Not Recovered/Not Resolved]
  - Nephrolithiasis [Unknown]
  - Depression [Unknown]
  - Diarrhoea [Not Recovered/Not Resolved]
  - Wheezing [Not Recovered/Not Resolved]
  - Constipation [Not Recovered/Not Resolved]
  - Productive cough [Not Recovered/Not Resolved]
  - Insomnia [Unknown]
  - Fatigue [Unknown]
  - Staphylococcal infection [Not Recovered/Not Resolved]
  - Dehydration [Unknown]
  - Fear [Unknown]

NARRATIVE: CASE EVENT DATE: 20220601
